FAERS Safety Report 13825695 (Version 3)
Quarter: 2017Q3

REPORT INFORMATION
  Report Type: Spontaneous
  Country: US (occurrence: US)
  Receive Date: 20170802
  Receipt Date: 20170911
  Transmission Date: 20171127
  Serious: No
  Sender: FDA-Public Use
  Company Number: US-009507513-1707USA010574

PATIENT
  Age: 24 Year
  Sex: Female
  Weight: 158.28 kg

DRUGS (2)
  1. NEXPLANON [Suspect]
     Active Substance: ETONOGESTREL
     Dosage: ONE ROD ONCE PER THREE YEARS
     Route: 059
     Dates: start: 20170725
  2. NEXPLANON [Suspect]
     Active Substance: ETONOGESTREL
     Indication: CONTRACEPTION
     Dosage: ONE ROD ONCE PER THREE YEARS, INSERTED IN LEFT ARM
     Route: 059
     Dates: start: 20140701, end: 20170725

REACTIONS (7)
  - Device deployment issue [Recovered/Resolved]
  - Device breakage [Recovered/Resolved]
  - No adverse event [Unknown]
  - Incorrect drug administration duration [Unknown]
  - Complication associated with device [Recovered/Resolved]
  - Device kink [Unknown]
  - Product quality issue [Unknown]

NARRATIVE: CASE EVENT DATE: 20140701
